FAERS Safety Report 9219564 (Version 1)
Quarter: 2013Q2

REPORT INFORMATION
  Report Type: Spontaneous
  Country: IN (occurrence: IN)
  Receive Date: 20130409
  Receipt Date: 20130409
  Transmission Date: 20140414
  Serious: Yes (Death)
  Sender: FDA-Public Use
  Company Number: IN-ROCHE-1207972

PATIENT
  Age: 52 Year
  Sex: Male

DRUGS (2)
  1. METALYSE [Suspect]
     Indication: MYOCARDIAL INFARCTION
     Route: 042
     Dates: start: 20110706, end: 20110706
  2. METALYSE [Suspect]
     Indication: MYOCARDIAL INFARCTION

REACTIONS (1)
  - Death [Fatal]
